FAERS Safety Report 4472022-6 (Version None)
Quarter: 2004Q3

REPORT INFORMATION
  Report Type: 
  Country: None (occurrence: None)
  Receive Date: 20040909
  Receipt Date: 20040604
  Transmission Date: 20050211
  Serious: Yes (Hospitalization)
  Sender: FDA-Public Use
  Company Number: F03200400052

PATIENT
  Age: 42 Year
  Sex: Male
  Weight: 91 kg

DRUGS (7)
  1. OXALIPLATIN [Suspect]
     Indication: COLORECTAL CANCER METASTATIC
     Dosage: INTRAVENOUS NOS
     Route: 042
     Dates: start: 20040202, end: 20040202
  2. PTK787/ZK 222584VS. PLACEBO [Suspect]
     Indication: COLORECTAL CANCER METASTATIC
     Dosage: ORAL
     Route: 048
     Dates: start: 20040203
  3. FLUOROURACIL [Concomitant]
  4. LEUCOVORIN [Concomitant]
  5. INSULIN LISPRO [Concomitant]
  6. RAMIPRIL [Concomitant]
  7. ANALGESIC NOS [Concomitant]

REACTIONS (5)
  - DIABETES MELLITUS INADEQUATE CONTROL [None]
  - GASTROENTERITIS [None]
  - NAUSEA [None]
  - PARAESTHESIA [None]
  - VOMITING [None]
